FAERS Safety Report 8115438-9 (Version None)
Quarter: 2012Q1

REPORT INFORMATION
  Report Type: 
  Country: None (occurrence: None)
  Receive Date: 20120206
  Receipt Date: 20120202
  Transmission Date: 20120608
  Serious: No
  Sender: FDA-Public Use
  Company Number: US-BAYER-2012-011197

PATIENT
  Age: 28 Year
  Sex: Female

DRUGS (1)
  1. BETASERON [Suspect]
     Dosage: UNK, QOD
     Route: 058
     Dates: start: 20101011

REACTIONS (1)
  - INJECTION SITE PAIN [None]
